FAERS Safety Report 9897463 (Version 2)
Quarter: 2014Q4

REPORT INFORMATION
  Report Type: Spontaneous
  Country: US (occurrence: US)
  Receive Date: 20140214
  Receipt Date: 20141205
  Transmission Date: 20150529
  Serious: Yes (Other)
  Sender: FDA-Public Use
  Company Number: US-BAYER-2014-022842

PATIENT
  Age: 26 Year
  Sex: Female

DRUGS (1)
  1. MIRENA [Suspect]
     Active Substance: LEVONORGESTREL
     Indication: CONTRACEPTION
     Dosage: 20 MCG/24HR, CONT
     Route: 015
     Dates: start: 20070531, end: 20120719

REACTIONS (6)
  - Injury [None]
  - Medical device discomfort [None]
  - Complication of device removal [None]
  - Device failure [None]
  - Procedural pain [None]
  - Medical device pain [None]

NARRATIVE: CASE EVENT DATE: 20120719
